FAERS Safety Report 17470035 (Version 1)
Quarter: 2020Q1

REPORT INFORMATION
  Report Type: Other
  Country: US (occurrence: AT)
  Receive Date: 20200227
  Receipt Date: 20200227
  Transmission Date: 20200409
  Serious: Yes (Hospitalization, Disabling, Other)
  Sender: FDA-Public Use
  Company Number: AT-BRECKENRIDGE PHARMACEUTICAL, INC.-2081040

PATIENT
  Age: 59 Year
  Sex: Female

DRUGS (4)
  1. CANDESARTAN. [Interacting]
     Active Substance: CANDESARTAN
  2. BISOPROLOL FUMARATE. [Suspect]
     Active Substance: BISOPROLOL FUMARATE
  3. DULOXETINE. [Suspect]
     Active Substance: DULOXETINE
     Indication: DEPRESSION
  4. ARIPIPRAZOLE. [Interacting]
     Active Substance: ARIPIPRAZOLE

REACTIONS (3)
  - Ophthalmoplegia [None]
  - Locomotive syndrome [None]
  - Drug interaction [None]
